FAERS Safety Report 26012730 (Version 1)
Quarter: 2025Q4

REPORT INFORMATION
  Report Type: Spontaneous
  Country: US (occurrence: US)
  Receive Date: 20251107
  Receipt Date: 20251107
  Transmission Date: 20260118
  Serious: No
  Sender: XERIS PHARMACEUTICALS
  Company Number: US-BRIAN CONNER SVP QUALITY AND CHIEF COMPLIANCE OFFICER-2025XER00332

PATIENT
  Sex: Male
  Weight: 91.61 kg

DRUGS (2)
  1. GVOKE [Suspect]
     Active Substance: GLUCAGON
     Indication: Hypoglycaemia
     Dosage: 1 MG, AS NEEDED
     Dates: start: 2025, end: 2025
  2. GVOKE [Suspect]
     Active Substance: GLUCAGON
     Indication: Type 1 diabetes mellitus

REACTIONS (3)
  - Influenza [Unknown]
  - COVID-19 [Unknown]
  - Gastroenteritis viral [Unknown]

NARRATIVE: CASE EVENT DATE: 20250101
